FAERS Safety Report 5133213-4 (Version None)
Quarter: 2006Q4

REPORT INFORMATION
  Report Type: 
  Country: None (occurrence: None)
  Receive Date: 20061018
  Receipt Date: 20061005
  Transmission Date: 20070319
  Serious: Yes (Hospitalization, Other)
  Sender: FDA-Public Use
  Company Number: 2006S1000242

PATIENT
  Age: 33 Year
  Sex: Female

DRUGS (1)
  1. ACITRETIN [Suspect]
     Indication: KERATOSIS FOLLICULAR
     Dosage: 40 MG; QD; PO
     Route: 048
     Dates: start: 19990101

REACTIONS (6)
  - ABORTION [None]
  - BLOOD CHOLESTEROL INCREASED [None]
  - DEEP VEIN THROMBOSIS [None]
  - DRUG EXPOSURE DURING PREGNANCY [None]
  - POSTOPERATIVE THROMBOSIS [None]
  - PREGNANCY [None]
